FAERS Safety Report 8371446-4 (Version None)
Quarter: 2012Q2

REPORT INFORMATION
  Report Type: 
  Country: None (occurrence: None)
  Receive Date: 20120518
  Receipt Date: 20120511
  Transmission Date: 20120825
  Serious: Yes (Other)
  Sender: FDA-Public Use
  Company Number: US-ELI_LILLY_AND_COMPANY-US201202001184

PATIENT
  Sex: Male

DRUGS (18)
  1. CIALIS [Suspect]
     Dosage: 20 MG, UNK
     Dates: start: 20111201
  2. XANAX [Concomitant]
     Dosage: 0.5 MG, UNK
  3. TERBINAFINE HCL [Concomitant]
     Dosage: 250 MG, UNK
  4. ALL DAY ALLERGY [Concomitant]
  5. CIALIS [Suspect]
     Indication: ERECTILE DYSFUNCTION
     Dosage: 20 MG, UNK
     Dates: start: 20070701
  6. LOVAZA [Concomitant]
  7. CIALIS [Suspect]
     Dosage: 5 MG, QD
     Dates: start: 20091001
  8. POTASSIUM CHLORIDE [Concomitant]
     Dosage: 10 MEQ, UNK
  9. CIALIS [Suspect]
     Dosage: 5 MG, QD
     Dates: start: 20120301
  10. OPTIVE [Concomitant]
     Dosage: 1 DF, OTHER
  11. ZEGERID [Concomitant]
     Dosage: 1 DF, UNK
  12. CIALIS [Suspect]
     Dosage: 20 MG, UNK
     Dates: start: 20100601
  13. EXFORGE [Concomitant]
  14. CIALIS [Suspect]
     Dosage: 20 MG, UNK
     Dates: start: 20110401
  15. CIALIS [Suspect]
     Dosage: 5 MG, QD
     Dates: start: 20110901, end: 20111201
  16. PLAVIX [Concomitant]
     Dosage: 75 MG, UNK
  17. STROVITE [Concomitant]
  18. CAVERJECT [Concomitant]
     Dosage: UNK
     Dates: start: 20090701

REACTIONS (1)
  - VISUAL ACUITY REDUCED [None]
